FAERS Safety Report 8075312-3 (Version None)
Quarter: 2012Q1

REPORT INFORMATION
  Report Type: 
  Country: None (occurrence: None)
  Receive Date: 20120127
  Receipt Date: 20120124
  Transmission Date: 20120608
  Serious: Yes (Hospitalization)
  Sender: FDA-Public Use
  Company Number: US-JNJFOC-20111100139

PATIENT
  Sex: Female

DRUGS (2)
  1. LEVAQUIN [Suspect]
     Indication: PRODUCT USED FOR UNKNOWN INDICATION
     Route: 042
     Dates: start: 20080101, end: 20080101
  2. UNKNOWN MEDICATION [Concomitant]
     Indication: HYPOTONIA
     Route: 065

REACTIONS (5)
  - ANAEMIA [None]
  - ACNE [None]
  - BLOOD DISORDER [None]
  - POOR VENOUS ACCESS [None]
  - WHITE BLOOD CELL COUNT INCREASED [None]
